FAERS Safety Report 16651583 (Version 3)
Quarter: 2019Q4

REPORT INFORMATION
  Report Type: Report from Study
  Country: JP (occurrence: JP)
  Receive Date: 20190731
  Receipt Date: 20191004
  Transmission Date: 20200122
  Serious: Yes (Death, Life-Threatening, Other)
  Sender: FDA-Public Use
  Company Number: JP-ASTELLAS-2019JP016189

PATIENT
  Age: 71 Year
  Sex: Male
  Weight: 58 kg

DRUGS (21)
  1. TAKECAB [Concomitant]
     Active Substance: VONOPRAZAN FUMURATE
     Indication: PROPHYLAXIS
     Dosage: 10 MG/DAY, UNKNOWN FREQ.
     Route: 048
  2. POLYMYXIN B SULFATE. [Concomitant]
     Active Substance: POLYMYXIN B SULFATE
     Indication: PROPHYLAXIS
     Dosage: 3 TABLETS/DAY, UNKNOWN FREQ.
     Route: 048
  3. ASCORBIC ACID. [Concomitant]
     Active Substance: ASCORBIC ACID
     Indication: NUTRITIONAL CONDITION ABNORMAL
     Dosage: 500 MG/DAY, UNKNOWN FREQ.
     Route: 048
  4. HUMULIN R [Concomitant]
     Active Substance: INSULIN HUMAN
     Indication: DIABETES MELLITUS
     Dosage: 42 MG/DAY, UNKNOWN FREQ.
     Route: 048
  5. MORPHINE HYDROCHLORIDE TRIHYDRATE [Concomitant]
     Active Substance: MORPHINE HYDROCHLORIDE
     Indication: PERIPHERAL ARTERIAL OCCLUSIVE DISEASE
     Dosage: 20 MG/DAY, UNKNOWN FREQ.
     Route: 048
     Dates: start: 20190712
  6. LIXIANA [Concomitant]
     Active Substance: EDOXABAN TOSYLATE
     Indication: PERIPHERAL ARTERIAL OCCLUSIVE DISEASE
  7. ASP2215 [Suspect]
     Active Substance: GILTERITINIB
     Route: 048
     Dates: start: 20190720, end: 20190722
  8. FLUCONAZOLE. [Concomitant]
     Active Substance: FLUCONAZOLE
     Indication: PROPHYLAXIS
     Dosage: 200 MG/DAY, UNKNOWN FREQ.
     Route: 048
     Dates: end: 20190715
  9. BIOFERMIN R [Concomitant]
     Active Substance: DIETARY SUPPLEMENT\PROBIOTICS
     Indication: PROPHYLAXIS
     Dosage: 3 TABLETS/DAY, UNKNOWN FREQ.
     Route: 048
  10. TAZOPIP [Concomitant]
     Active Substance: PIPERACETAZINE\TAZOBACTAM
     Indication: PYREXIA
     Dosage: 13.5 G/DAY, UNKNOWN FREQ.
     Route: 065
     Dates: start: 20190709, end: 20190714
  11. LIXIANA [Concomitant]
     Active Substance: EDOXABAN TOSYLATE
     Indication: ATRIAL FIBRILLATION
     Dosage: 30 MG/DAY, UNKNOWN FREQ.
     Route: 048
  12. GABEXATE MESILATE [Concomitant]
     Active Substance: GABEXATE MESYLATE
     Indication: ACUTE MYELOID LEUKAEMIA
     Dosage: 500 MG/DAY, UNKNOWN FREQ.
     Route: 065
  13. ELNEOPA NO.1 [Concomitant]
     Active Substance: AMINO ACIDS\DEXTROSE\ELECTROLYTES NOS\MINERALS\VITAMINS
     Indication: NUTRITIONAL CONDITION ABNORMAL
     Dosage: 1000 ML/DAY, UNKNOWN FREQ.
     Route: 065
     Dates: start: 20190709
  14. SAMTIREL [Concomitant]
     Active Substance: ATOVAQUONE
     Indication: PROPHYLAXIS
     Dosage: 1500 MG/DAY, UNKNOWN FREQ.
     Route: 048
  15. PREDONINE [Concomitant]
     Active Substance: PREDNISOLONE
     Indication: ACUTE MYELOID LEUKAEMIA
     Dosage: 10 MG/DAY, UNKNOWN FREQ.
     Route: 065
  16. ASP2215 [Suspect]
     Active Substance: GILTERITINIB
     Indication: ACUTE MYELOID LEUKAEMIA
     Route: 048
     Dates: start: 20190709, end: 20190719
  17. BAYASPIRIN [Concomitant]
     Active Substance: ASPIRIN
     Indication: PERIPHERAL ARTERIAL OCCLUSIVE DISEASE
     Dosage: 100 MG/DAY, UNKNOWN FREQ.
     Route: 048
  18. MEROPENEM. [Concomitant]
     Active Substance: MEROPENEM
     Indication: PYREXIA
     Dosage: 3 G/DAY, UNKNOWN FREQ.
     Route: 065
     Dates: start: 20190715
  19. FUNGUARD [Concomitant]
     Active Substance: MICAFUNGIN SODIUM
     Indication: PYREXIA
     Dosage: 50 MG/DAY, UNKNOWN FREQ.
     Route: 048
     Dates: start: 20190716
  20. VANCOMYCIN [Concomitant]
     Active Substance: VANCOMYCIN
     Indication: PYREXIA
     Dosage: 2 G/DAY, UNKNOWN FREQ.
     Route: 065
     Dates: start: 20190716
  21. NAIXAN                             /00256201/ [Concomitant]
     Active Substance: NAPROXEN
     Indication: PYREXIA
     Dosage: 300 MG/DAY, UNKNOWN FREQ.
     Route: 048
     Dates: start: 20190721

REACTIONS (6)
  - Alanine aminotransferase increased [Not Recovered/Not Resolved]
  - Cardiac failure [Fatal]
  - Platelet count decreased [Not Recovered/Not Resolved]
  - Aspartate aminotransferase increased [Not Recovered/Not Resolved]
  - Blood lactate dehydrogenase increased [Unknown]
  - Transaminases increased [Unknown]

NARRATIVE: CASE EVENT DATE: 20190718
